FAERS Safety Report 12484382 (Version 1)
Quarter: 2016Q2

REPORT INFORMATION
  Report Type: Spontaneous
  Country: US (occurrence: None)
  Receive Date: 20160620
  Receipt Date: 20160620
  Transmission Date: 20160815
  Serious: Yes (Disabling)
  Sender: FDA-Public Use
  Company Number: None

PATIENT
  Age: 45 Year
  Sex: Male
  Weight: 83.92 kg

DRUGS (5)
  1. AFRIN [Concomitant]
     Active Substance: OXYMETAZOLINE
  2. ADVIL IBUPROFIN [Concomitant]
  3. ZICAM COLD REMEDY NASAL SWABS (HOMEOPATHICS) [Suspect]
     Active Substance: HOMEOPATHICS
     Indication: NASOPHARYNGITIS
     Dosage: 20 SWABS  EVERY 3 HRS SWAB JUST INSIDE NOSTRILS
     Route: 045
     Dates: start: 20160611, end: 20160614
  4. RITE AID NASAL RELIEF STERILE SALINE NASAL MIST [Concomitant]
  5. GENERIC (KIRKLAND BRAND) ALLERGY MEDICINE (DIPHENHYDRAMINE HCL [Concomitant]

REACTIONS (1)
  - Anosmia [None]

NARRATIVE: CASE EVENT DATE: 20160615
